FAERS Safety Report 9932033 (Version 1)
Quarter: 2014Q1

REPORT INFORMATION
  Report Type: Spontaneous
  Country: US (occurrence: None)
  Receive Date: 20140227
  Receipt Date: 20140227
  Transmission Date: 20141002
  Serious: Yes (Hospitalization)
  Sender: FDA-Public Use
  Company Number: None

PATIENT
  Age: 59 Year
  Sex: Female
  Weight: 56.7 kg

DRUGS (5)
  1. BUPROPION [Suspect]
     Indication: ANTIDEPRESSANT THERAPY
     Dosage: 150MG XL?1 TAB?DAILY?PO RAPERED OFF MEDICATION OVER 1 WK PERIOD
     Route: 048
     Dates: start: 20130515, end: 20140119
  2. MYCOPHENOLATE [Concomitant]
  3. APLANTADINE [Concomitant]
  4. ESCITALOPRAM [Concomitant]
  5. L-CARNITINE [Concomitant]

REACTIONS (2)
  - Hallucination [None]
  - Delirium [None]
